FAERS Safety Report 18418635 (Version 1)
Quarter: 2020Q4

REPORT INFORMATION
  Report Type: Spontaneous
  Country: US (occurrence: US)
  Receive Date: 20201023
  Receipt Date: 20201023
  Transmission Date: 20210114
  Serious: Yes (Death, Other)
  Sender: FDA-Public Use
  Company Number: US-ALKEM LABORATORIES LIMITED-US-ALKEM-2020-06861

PATIENT
  Age: 67 Year
  Sex: Male

DRUGS (2)
  1. AMLODIPINE BESYLATE. [Suspect]
     Active Substance: AMLODIPINE BESYLATE
     Indication: PRODUCT USED FOR UNKNOWN INDICATION
     Dosage: UNK
     Route: 065
  2. LORAZEPAM. [Suspect]
     Active Substance: LORAZEPAM
     Indication: PRODUCT USED FOR UNKNOWN INDICATION
     Dosage: UNK
     Route: 065

REACTIONS (11)
  - Metabolic acidosis [Unknown]
  - Depressed level of consciousness [Unknown]
  - Coagulopathy [Unknown]
  - Electrocardiogram PR prolongation [Unknown]
  - Acute kidney injury [Unknown]
  - Rhabdomyolysis [Unknown]
  - Toxicity to various agents [Fatal]
  - Bradycardia [Unknown]
  - Respiratory depression [Unknown]
  - Coma [Unknown]
  - Agitation [Unknown]
